FAERS Safety Report 23432539 (Version 1)
Quarter: 2024Q1

REPORT INFORMATION
  Report Type: Report from Study
  Country: BR (occurrence: BR)
  Receive Date: 20240123
  Receipt Date: 20240123
  Transmission Date: 20240410
  Serious: Yes (Hospitalization, Other)
  Sender: FDA-Public Use
  Company Number: BR-JNJFOC-20240150069

PATIENT
  Age: 58 Year
  Sex: Male

DRUGS (4)
  1. SIMPONI [Suspect]
     Active Substance: GOLIMUMAB
     Indication: Rheumatoid arthritis
     Route: 058
  2. SIMPONI [Suspect]
     Active Substance: GOLIMUMAB
  3. PREDSIM [PREDNISOLONE] [Concomitant]
     Dates: start: 202311
  4. ITRACONAZOLE [Concomitant]
     Active Substance: ITRACONAZOLE
     Dates: start: 202311

REACTIONS (4)
  - Histoplasmosis [Recovered/Resolved]
  - Decreased immune responsiveness [Recovered/Resolved]
  - Dengue fever [Recovered/Resolved]
  - Memory impairment [Recovered/Resolved]

NARRATIVE: CASE EVENT DATE: 20240101
